FAERS Safety Report 8359125-0 (Version None)
Quarter: 2012Q2

REPORT INFORMATION
  Report Type: 
  Country: None (occurrence: None)
  Receive Date: 20120515
  Receipt Date: 20120501
  Transmission Date: 20120825
  Serious: Yes (Death, Hospitalization)
  Sender: FDA-Public Use
  Company Number: US-RANBAXY-2012US-56284

PATIENT
  Age: 79 Year
  Sex: Female

DRUGS (7)
  1. LORAZEPAM [Suspect]
     Indication: INSOMNIA
     Dosage: 0.5 MG, QD
     Route: 065
  2. MIRTAZAPINE [Suspect]
     Indication: ANXIETY
     Route: 065
  3. METOPROLOL TARTRATE [Interacting]
     Indication: PRODUCT USED FOR UNKNOWN INDICATION
     Route: 065
  4. MIRTAZAPINE [Suspect]
     Indication: DECREASED APPETITE
  5. GLYBURIDE [Interacting]
     Indication: PRODUCT USED FOR UNKNOWN INDICATION
     Route: 065
  6. MIRTAZAPINE [Suspect]
     Indication: INSOMNIA
  7. SERTRALINE HYDROCHLORIDE [Suspect]
     Indication: PRODUCT USED FOR UNKNOWN INDICATION
     Dosage: UNK
     Route: 065

REACTIONS (3)
  - ALCOHOLISM [None]
  - COGNITIVE DISORDER [None]
  - ALCOHOL INTERACTION [None]
